FAERS Safety Report 12310571 (Version 1)
Quarter: 2016Q2

REPORT INFORMATION
  Report Type: Spontaneous
  Country: US (occurrence: None)
  Receive Date: 20160426
  Receipt Date: 20160426
  Transmission Date: 20160815
  Serious: Yes (Hospitalization)
  Sender: FDA-Public Use
  Company Number: None

PATIENT
  Age: 58 Year
  Sex: Male

DRUGS (17)
  1. HYDROCHLOROT TAB [Concomitant]
  2. PANTOPRAZOLE [Concomitant]
     Active Substance: PANTOPRAZOLE SODIUM
  3. SIMVASTATIN. [Concomitant]
     Active Substance: SIMVASTATIN
  4. DOCQLACE [Concomitant]
     Active Substance: DOCUSATE SODIUM
  5. OXYCO/APAP [Concomitant]
  6. COTELLIC [Suspect]
     Active Substance: COBIMETINIB
     Indication: SKIN CANCER
     Dosage: 3 TABS  DAILY X 21 PO
     Route: 048
     Dates: start: 20160409, end: 20160418
  7. HYDRALIZINE [Concomitant]
  8. METOPROLOL TARTRATE. [Concomitant]
     Active Substance: METOPROLOL TARTRATE
  9. SUPREPR BOWL SOL [Concomitant]
  10. HYDROCO/APAP [Concomitant]
     Active Substance: ACETAMINOPHEN\HYDROCODONE
  11. IBUPROFEN. [Concomitant]
     Active Substance: IBUPROFEN
  12. PROCHLORPER [Concomitant]
  13. LANTUS [Concomitant]
     Active Substance: INSULIN GLARGINE
  14. ONDANSETRON [Concomitant]
     Active Substance: ONDANSETRON
  15. TRAMADOL. [Concomitant]
     Active Substance: TRAMADOL
  16. AMLOD/BENAZP [Concomitant]
  17. AMOXICILLIN CAP [Concomitant]

REACTIONS (4)
  - Anger [None]
  - Abasia [None]
  - Rash generalised [None]
  - Cardiac disorder [None]

NARRATIVE: CASE EVENT DATE: 20160418
